FAERS Safety Report 15576770 (Version 3)
Quarter: 2021Q4

REPORT INFORMATION
  Report Type: Spontaneous
  Country: US (occurrence: US)
  Receive Date: 20181101
  Receipt Date: 20211119
  Transmission Date: 20220303
  Serious: Yes (Other)
  Sender: FDA-Public Use
  Company Number: US-COOPERSURGICAL, INC.-US-2018CPS033116

PATIENT
  Age: 35 Year
  Sex: Female
  Weight: 73.923 kg

DRUGS (2)
  1. PARAGARD T 380A [Suspect]
     Active Substance: COPPER
     Indication: Contraception
     Dosage: UNK
     Route: 015
     Dates: start: 20080903, end: 20181003
  2. ZOLOFT [Concomitant]
     Active Substance: SERTRALINE HYDROCHLORIDE
     Dosage: 50 MG, QD
     Route: 065

REACTIONS (14)
  - Disability [Unknown]
  - Deformity [Unknown]
  - Injury associated with device [Unknown]
  - Device breakage [Recovered/Resolved]
  - Foreign body in reproductive tract [Recovered/Resolved]
  - Complication of device removal [Recovered/Resolved]
  - Pain [Unknown]
  - Emotional distress [Unknown]
  - Anhedonia [Unknown]
  - Reproductive complication associated with device [Unknown]
  - Economic problem [Unknown]
  - Anxiety [Unknown]
  - Discomfort [Unknown]
  - Device use issue [Unknown]

NARRATIVE: CASE EVENT DATE: 20180907
